FAERS Safety Report 4805415-5 (Version None)
Quarter: 2005Q4

REPORT INFORMATION
  Report Type: 
  Country: None (occurrence: None)
  Receive Date: 20051018
  Receipt Date: 20051003
  Transmission Date: 20060501
  Serious: Yes (Other)
  Sender: FDA-Public Use
  Company Number: 2005BI017960

PATIENT
  Age: 57 Year
  Sex: Female

DRUGS (17)
  1. NATALIZUMAB (NATALIZUMAB) [Suspect]
     Indication: CROHN'S DISEASE
     Dosage: 300 MG; QM; IV
     Route: 042
     Dates: start: 20030708, end: 20040128
  2. PREDNISONE TAB [Concomitant]
  3. PREDNISONE TAB [Concomitant]
  4. PREDNISONE TAB [Concomitant]
  5. PREDNISONE TAB [Concomitant]
  6. PREDNISONE TAB [Concomitant]
  7. PREDNISONE TAB [Concomitant]
  8. PREDNISONE TAB [Concomitant]
  9. PREDNISONE TAB [Concomitant]
  10. TYLENOL W/ CODEINE NO. 3 [Concomitant]
  11. ASCORBIC ACID [Concomitant]
  12. TEMOZOLOMIDE [Concomitant]
  13. TEMAZEPAM [Concomitant]
  14. TEARS NATURALE [Concomitant]
  15. GENTEAL [Concomitant]
  16. METHOTREXATE [Concomitant]
  17. AZATHIOPRINE [Concomitant]

REACTIONS (4)
  - CHOLECYSTECTOMY [None]
  - DRUG INEFFECTIVE [None]
  - ILEOSTOMY [None]
  - MENINGIOMA [None]
